FAERS Safety Report 6640484-1 (Version None)
Quarter: 2010Q1

REPORT INFORMATION
  Report Type: 
  Country: None (occurrence: None)
  Receive Date: 20100318
  Receipt Date: 20100308
  Transmission Date: 20100710
  Serious: Yes (Hospitalization)
  Sender: FDA-Public Use
  Company Number: FR-PFIZER INC-2010004889

PATIENT
  Age: 47 Year
  Sex: Male

DRUGS (4)
  1. PRODILANTIN [Suspect]
     Dosage: UNK
     Dates: start: 20090831, end: 20090902
  2. CLAFORAN [Concomitant]
     Dosage: 1 G, 2X/DAY
     Dates: start: 20090831, end: 20090902
  3. KEPPRA [Concomitant]
     Dosage: 500 MG, 2X/DAY
  4. TEGRETOL [Concomitant]
     Dosage: 400 MG, 2X/DAY

REACTIONS (1)
  - CYTOLYTIC HEPATITIS [None]
